FAERS Safety Report 14592416 (Version 1)
Quarter: 2018Q1

REPORT INFORMATION
  Report Type: Spontaneous
  Country: US (occurrence: US)
  Receive Date: 20180301
  Receipt Date: 20180301
  Transmission Date: 20180509
  Serious: Yes (Hospitalization)
  Sender: FDA-Public Use
  Company Number: None

PATIENT
  Age: 61 Year
  Sex: Male
  Weight: 63 kg

DRUGS (5)
  1. MORPHINE [Concomitant]
     Active Substance: MORPHINE
  2. POLYETHYLENE GLYCOL [Concomitant]
     Active Substance: POLYETHYLENE GLYCOLS
  3. ONDANSETRON [Concomitant]
     Active Substance: ONDANSETRON
  4. SENNOSIDES. [Concomitant]
     Active Substance: SENNOSIDES
  5. APIXABAN [Suspect]
     Active Substance: APIXABAN
     Indication: JUGULAR VEIN THROMBOSIS
     Dosage: ROUTE - PEG TUBE
     Dates: start: 20171031

REACTIONS (2)
  - Small intestinal obstruction [None]
  - Diaphragmatic hernia, obstructive [None]

NARRATIVE: CASE EVENT DATE: 20180301
